FAERS Safety Report 22655846 (Version 1)
Quarter: 2023Q2

REPORT INFORMATION
  Report Type: Spontaneous
  Country: US (occurrence: US)
  Receive Date: 20230629
  Receipt Date: 20230629
  Transmission Date: 20230722
  Serious: No
  Sender: FDA-Public Use
  Company Number: US-PFIZER INC-202300229874

PATIENT
  Age: 65 Year
  Sex: Female

DRUGS (2)
  1. IBRANCE [Suspect]
     Active Substance: PALBOCICLIB
     Dosage: 125 MG, CYCLIC (DAILY FOR 3 WEEKS ON FOLLOWED BY 1 WEEK OFF)
     Dates: start: 20230328
  2. ANASTROZOLE [Suspect]
     Active Substance: ANASTROZOLE

REACTIONS (1)
  - Arthralgia [Not Recovered/Not Resolved]
